FAERS Safety Report 7959586-2 (Version None)
Quarter: 2011Q4

REPORT INFORMATION
  Report Type: 
  Country: None (occurrence: None)
  Receive Date: 20111206
  Receipt Date: 20111122
  Transmission Date: 20120403
  Serious: Yes (Hospitalization)
  Sender: FDA-Public Use
  Company Number: GB-GLAXOSMITHKLINE-A0956535A

PATIENT
  Sex: Female

DRUGS (1)
  1. NICORETTE [Suspect]
     Route: 002
     Dates: end: 20111113

REACTIONS (8)
  - NICOTINE DEPENDENCE [None]
  - HEART RATE INCREASED [None]
  - SALIVARY GLAND CALCULUS [None]
  - PALPITATIONS [None]
  - INTENTIONAL DRUG MISUSE [None]
  - BLOOD PRESSURE INCREASED [None]
  - DYSPNOEA [None]
  - DRUG WITHDRAWAL SYNDROME [None]
